FAERS Safety Report 7065561-5 (Version None)
Quarter: 2010Q4

REPORT INFORMATION
  Report Type: 
  Country: None (occurrence: None)
  Receive Date: 20101027
  Receipt Date: 20101026
  Transmission Date: 20110411
  Serious: Yes (Other)
  Sender: FDA-Public Use
  Company Number: ES-BRISTOL-MYERS SQUIBB COMPANY-15305964

PATIENT
  Age: 30 Year
  Sex: Male

DRUGS (3)
  1. ERBITUX [Suspect]
     Indication: HEAD AND NECK CANCER
     Dosage: 250MG/M2
     Route: 042
  2. CISPLATIN [Suspect]
     Indication: HEAD AND NECK CANCER
     Dosage: 100MG/M2
     Route: 042
     Dates: end: 20100401
  3. FLUOROURACIL [Concomitant]
     Indication: HEAD AND NECK CANCER
     Dosage: 1000MG/M2
     Route: 042
     Dates: end: 20100401

REACTIONS (1)
  - NEUROPATHY PERIPHERAL [None]
